FAERS Safety Report 18082940 (Version 1)
Quarter: 2020Q3

REPORT INFORMATION
  Report Type: Spontaneous
  Country: US (occurrence: US)
  Receive Date: 20200728
  Receipt Date: 20200728
  Transmission Date: 20201103
  Serious: No
  Sender: FDA-Public Use
  Company Number: US-PERRIGO-19US014091

PATIENT
  Sex: Male
  Weight: 71.66 kg

DRUGS (2)
  1. MINOXIDIL. [Suspect]
     Active Substance: MINOXIDIL
     Indication: ALOPECIA
     Dosage: 1 ML, UP TO BID, PRN
     Route: 061
     Dates: start: 2019, end: 201908
  2. MINOXIDIL. [Suspect]
     Active Substance: MINOXIDIL
     Dosage: 1 ML, BID, 5 TO 7 DAYS PER WEEK
     Route: 061
     Dates: start: 201908, end: 201910

REACTIONS (5)
  - Skin exfoliation [Recovering/Resolving]
  - Condition aggravated [Not Recovered/Not Resolved]
  - Application site pruritus [Recovered/Resolved]
  - Inappropriate schedule of product administration [Recovered/Resolved]
  - Scab [Not Recovered/Not Resolved]

NARRATIVE: CASE EVENT DATE: 2019
